FAERS Safety Report 9154291 (Version 1)
Quarter: 2013Q1

REPORT INFORMATION
  Report Type: Spontaneous
  Country: US (occurrence: None)
  Receive Date: 20130306
  Receipt Date: 20130306
  Transmission Date: 20140127
  Serious: Yes (Hospitalization)
  Sender: FDA-Public Use
  Company Number: None

PATIENT
  Sex: Male
  Weight: 57 kg

DRUGS (4)
  1. ACTEMRA [Suspect]
     Indication: PROPHYLAXIS
     Route: 042
     Dates: start: 20130209
  2. ACTEMRA [Suspect]
     Indication: TRANSPLANT REJECTION
     Route: 042
     Dates: start: 20130209
  3. PROGRAF [Concomitant]
  4. PREDNISONE [Concomitant]

REACTIONS (3)
  - Small intestinal obstruction [None]
  - Colitis ischaemic [None]
  - Campylobacter test positive [None]
